FAERS Safety Report 23252306 (Version 1)
Quarter: 2023Q4

REPORT INFORMATION
  Report Type: Spontaneous
  Country: FR (occurrence: FR)
  Receive Date: 20231201
  Receipt Date: 20231201
  Transmission Date: 20240109
  Serious: Yes (Other)
  Sender: FDA-Public Use
  Company Number: None

PATIENT
  Age: 40 Year
  Sex: Female

DRUGS (3)
  1. SILDENAFIL [Suspect]
     Active Substance: SILDENAFIL
     Indication: Weight decreased
     Dosage: 1 DOSAGE FORM, Q2D
     Route: 065
     Dates: start: 202309
  2. CAFFEINE [Suspect]
     Active Substance: CAFFEINE
     Indication: Weight decreased
     Dosage: 1 DOSAGE FORM, Q2D
     Route: 065
     Dates: start: 202309
  3. SIBUTRAMINE HYDROCHLORIDE MONOHYDRATE [Suspect]
     Active Substance: SIBUTRAMINE HYDROCHLORIDE
     Indication: Weight decreased
     Dosage: 1 DOSAGE FORM, Q2D
     Route: 065
     Dates: start: 202309

REACTIONS (1)
  - Weight decreased [Not Recovered/Not Resolved]

NARRATIVE: CASE EVENT DATE: 20230914
